FAERS Safety Report 23551872 (Version 1)
Quarter: 2024Q1

REPORT INFORMATION
  Report Type: Spontaneous
  Country: FR (occurrence: FR)
  Receive Date: 20240222
  Receipt Date: 20240222
  Transmission Date: 20240410
  Serious: Yes (Other)
  Sender: FDA-Public Use
  Company Number: FR-AFSSAPS-RS2024000128

PATIENT
  Age: 81 Year
  Sex: Male
  Weight: 65 kg

DRUGS (1)
  1. OLANZAPINE [Suspect]
     Active Substance: OLANZAPINE
     Indication: Product used for unknown indication
     Dosage: 10 MILLIGRAM
     Route: 048
     Dates: start: 20231225, end: 20231225

REACTIONS (3)
  - Coma [Recovered/Resolved]
  - Incorrect dose administered [Recovered/Resolved]
  - Medication error [Recovered/Resolved]

NARRATIVE: CASE EVENT DATE: 20231225
